FAERS Safety Report 16721800 (Version 2)
Quarter: 2019Q4

REPORT INFORMATION
  Report Type: Report from Study
  Country: CA (occurrence: CA)
  Receive Date: 20190820
  Receipt Date: 20191115
  Transmission Date: 20200122
  Serious: Yes (Other)
  Sender: FDA-Public Use
  Company Number: CA-GLAXOSMITHKLINE-CA2019AMR147569

PATIENT
  Sex: Male

DRUGS (18)
  1. VITAMIN B12 [Concomitant]
     Active Substance: CYANOCOBALAMIN
     Indication: PRODUCT USED FOR UNKNOWN INDICATION
     Dosage: UNK
  2. ELIQUIS [Concomitant]
     Active Substance: APIXABAN
     Indication: PRODUCT USED FOR UNKNOWN INDICATION
     Dosage: UNK
  3. MEPOLIZUMAB [Suspect]
     Active Substance: MEPOLIZUMAB
     Indication: ASTHMA
     Dosage: 100 MG, UNK
     Dates: start: 20180330
  4. BREO ELLIPTA [Suspect]
     Active Substance: FLUTICASONE FUROATE\VILANTEROL TRIFENATATE
     Indication: ASTHMA
     Dosage: 200 UG, UNK
  5. XOLAIR [Suspect]
     Active Substance: OMALIZUMAB
     Indication: EOSINOPHILIC PNEUMONIA CHRONIC
     Dosage: UNK
  6. PREDNISONE. [Concomitant]
     Active Substance: PREDNISONE
     Indication: EOSINOPHILIC PNEUMONIA CHRONIC
     Dosage: UNK
  7. ALENDRONATE [Concomitant]
     Active Substance: ALENDRONATE SODIUM
     Indication: PRODUCT USED FOR UNKNOWN INDICATION
     Dosage: UNK
  8. MEPOLIZUMAB [Suspect]
     Active Substance: MEPOLIZUMAB
     Dosage: 300 MG, Z (MONTHLY)
     Route: 042
  9. AZATHIOPRINE. [Suspect]
     Active Substance: AZATHIOPRINE
     Indication: EOSINOPHILIC PNEUMONIA CHRONIC
     Dosage: UNK
  10. MYCOPHENOLATE [Suspect]
     Active Substance: MYCOPHENOLIC ACID
     Indication: EOSINOPHILIC PNEUMONIA CHRONIC
     Dosage: UNK
  11. OMEPRAZOLE. [Concomitant]
     Active Substance: OMEPRAZOLE
     Indication: PRODUCT USED FOR UNKNOWN INDICATION
     Dosage: UNK
  12. FLOVENT [Suspect]
     Active Substance: FLUTICASONE PROPIONATE
     Indication: ASTHMA
     Dosage: UNK
  13. VENTOLIN [Suspect]
     Active Substance: ALBUTEROL SULFATE
     Indication: PRODUCT USED FOR UNKNOWN INDICATION
     Dosage: UNK
  14. ROSUVASTATIN. [Concomitant]
     Active Substance: ROSUVASTATIN
     Indication: PRODUCT USED FOR UNKNOWN INDICATION
     Dosage: UNK
  15. DILTIAZEM. [Concomitant]
     Active Substance: DILTIAZEM
     Indication: PRODUCT USED FOR UNKNOWN INDICATION
     Dosage: UNK, QD
  16. PULMICORT TURBUHALER [Concomitant]
     Active Substance: BUDESONIDE
     Indication: PRODUCT USED FOR UNKNOWN INDICATION
     Dosage: UNK
  17. PERCOCET [Concomitant]
     Active Substance: ACETAMINOPHEN\OXYCODONE HYDROCHLORIDE
     Indication: PRODUCT USED FOR UNKNOWN INDICATION
     Dosage: UNK
  18. OMNARIS [Concomitant]
     Active Substance: CICLESONIDE
     Indication: PRODUCT USED FOR UNKNOWN INDICATION
     Dosage: UNK

REACTIONS (26)
  - Dyspnoea [Unknown]
  - Bronchial wall thickening [Unknown]
  - Wrong product administered [Unknown]
  - Adverse drug reaction [Unknown]
  - Skin atrophy [Unknown]
  - Lymphadenopathy [Unknown]
  - Product use issue [Unknown]
  - Asthma [Unknown]
  - Cellulitis [Unknown]
  - Pain in extremity [Unknown]
  - Weight decreased [Unknown]
  - Clostridium difficile infection [Unknown]
  - Arteriosclerosis coronary artery [Unknown]
  - Small airways disease [Unknown]
  - Nasal inflammation [Unknown]
  - Erythema [Unknown]
  - Eosinophilic pneumonia chronic [Unknown]
  - Sinusitis [Unknown]
  - Deep vein thrombosis [Unknown]
  - Nasal congestion [Unknown]
  - Pneumonia [Unknown]
  - Clostridium difficile colitis [Unknown]
  - Productive cough [Unknown]
  - Oedema peripheral [Unknown]
  - Rib fracture [Unknown]
  - Weight increased [Unknown]
